FAERS Safety Report 6247566-7 (Version None)
Quarter: 2009Q2

REPORT INFORMATION
  Report Type: 
  Country: None (occurrence: None)
  Receive Date: 20090626
  Receipt Date: 20090619
  Transmission Date: 20091009
  Serious: Yes (Death)
  Sender: FDA-Public Use
  Company Number: US-MERCK-0906USA04200

PATIENT
  Sex: Female

DRUGS (2)
  1. IVEMEND [Suspect]
     Route: 042
     Dates: start: 20080324
  2. IVEMEND [Suspect]
     Route: 042
     Dates: start: 20080414

REACTIONS (1)
  - DEATH [None]
